FAERS Safety Report 5080503-X (Version None)
Quarter: 2006Q3

REPORT INFORMATION
  Report Type: 
  Country: None (occurrence: None)
  Receive Date: 20060720
  Receipt Date: 20060509
  Transmission Date: 20061208
  Serious: Yes (Other)
  Sender: FDA-Public Use
  Company Number: 2005144706

PATIENT
  Age: 80 Year
  Sex: Female
  Weight: 68.0396 kg

DRUGS (3)
  1. CELEBREX [Suspect]
     Indication: ILL-DEFINED DISORDER
     Dosage: 200 MG (200 MG,1 IN 1D)
     Dates: start: 20030701
  2. ACTOS [Concomitant]
  3. LISINOPRIL [Concomitant]

REACTIONS (1)
  - CEREBROVASCULAR ACCIDENT [None]
